FAERS Safety Report 5744397-9 (Version None)
Quarter: 2008Q2

REPORT INFORMATION
  Report Type: 
  Country: None (occurrence: None)
  Receive Date: 20080520
  Receipt Date: 20080513
  Transmission Date: 20081010
  Serious: Yes (Disabling)
  Sender: FDA-Public Use
  Company Number: CA-ABBOTT-08P-028-0451823-00

PATIENT
  Sex: Male
  Weight: 91 kg

DRUGS (1)
  1. BIAXIN XL [Suspect]
     Indication: SINUSITIS
     Route: 048
     Dates: start: 20080331

REACTIONS (11)
  - ANXIETY [None]
  - ASTHENIA [None]
  - DEPRESSION [None]
  - DIARRHOEA [None]
  - DIZZINESS [None]
  - HALLUCINATION [None]
  - HYPERHIDROSIS [None]
  - PANIC ATTACK [None]
  - PARAESTHESIA [None]
  - THINKING ABNORMAL [None]
  - VERTIGO [None]
